FAERS Safety Report 15862023 (Version 1)
Quarter: 2018Q4

REPORT INFORMATION
  Report Type: Spontaneous
  Country: US (occurrence: US)
  Receive Date: 20181231
  Receipt Date: 20181231
  Transmission Date: 20190205
  Serious: No
  Sender: FDA-Public Use
  Company Number: None

PATIENT
  Age: 85 Year
  Sex: Female

DRUGS (1)
  1. ESBRIET [Suspect]
     Active Substance: PIRFENIDONE
     Route: 048
     Dates: start: 20181204

REACTIONS (4)
  - Rash [None]
  - Pruritus [None]
  - Insomnia [None]
  - Drug hypersensitivity [None]

NARRATIVE: CASE EVENT DATE: 20181228
